FAERS Safety Report 10271873 (Version 1)
Quarter: 2014Q3

REPORT INFORMATION
  Report Type: Spontaneous
  Country: DK (occurrence: DK)
  Receive Date: 20140702
  Receipt Date: 20140702
  Transmission Date: 20150326
  Serious: Yes (Death, Hospitalization)
  Sender: FDA-Public Use
  Company Number: PHHY2014DK077651

PATIENT
  Age: 19 Year
  Sex: Male

DRUGS (5)
  1. CISPLATIN. [Suspect]
     Active Substance: CISPLATIN
     Indication: TESTIS CANCER
     Dosage: 20 MG/M2, S.I.D (ON DAY 1-5)
  2. PIRFENIDONE [Suspect]
     Active Substance: PIRFENIDONE
     Indication: PNEUMONITIS
     Dosage: 802 MG, TID
  3. METHYLPREDNISOLONE [Suspect]
     Active Substance: METHYLPREDNISOLONE
     Indication: PNEUMONITIS
     Dosage: 100 MG, S.I.D
  4. ETOPOSIDE. [Suspect]
     Active Substance: ETOPOSIDE
     Indication: TESTIS CANCER
     Dosage: 100 MG/M2, S.I.D ON DAY 1-5
  5. BLEOMYCIN [Suspect]
     Active Substance: BLEOMYCIN SULFATE
     Indication: TESTIS CANCER
     Dosage: 30000 IU ON DAY 2, 9 AND 16

REACTIONS (7)
  - Treatment failure [Unknown]
  - Febrile neutropenia [Unknown]
  - Dyspnoea [Fatal]
  - General physical health deterioration [Unknown]
  - Respiratory disorder [Not Recovered/Not Resolved]
  - Oxygen saturation decreased [Unknown]
  - Pneumonitis [Fatal]
